FAERS Safety Report 24958177 (Version 2)
Quarter: 2025Q1

REPORT INFORMATION
  Report Type: Report from Study
  Country: US (occurrence: US)
  Receive Date: 20250212
  Receipt Date: 20250321
  Transmission Date: 20250409
  Serious: Yes (Other)
  Sender: ABBVIE
  Company Number: US-ABBVIE-6080125

PATIENT
  Sex: Female

DRUGS (1)
  1. HUMIRA [Suspect]
     Active Substance: ADALIMUMAB
     Indication: Colitis ulcerative
     Route: 058

REACTIONS (7)
  - Back injury [Unknown]
  - Post procedural complication [Unknown]
  - Uterine disorder [Unknown]
  - Hip surgery [Unknown]
  - Adnexal torsion [Unknown]
  - Uterine malposition [Unknown]
  - Back pain [Unknown]
